FAERS Safety Report 8910678 (Version 2)
Quarter: 2012Q4

REPORT INFORMATION
  Report Type: Spontaneous
  Country: BE (occurrence: None)
  Receive Date: 20121113
  Receipt Date: 20121115
  Transmission Date: 20130627
  Serious: Yes (Hospitalization)
  Sender: FDA-Public Use
  Company Number: 2012AP003798

PATIENT
  Age: 46 Year
  Sex: Female

DRUGS (4)
  1. GABAPENTIN [Suspect]
     Indication: SEIZURES
  2. LEVETIRACETAM [Suspect]
     Indication: SEIZURES
  3. LAMOTRIGINE (LAMOTRIGINE) [Suspect]
     Indication: SEIZURES
  4. VALPROIC ACID [Suspect]
     Indication: SEIZURES

REACTIONS (8)
  - Hypothermia [None]
  - Incorrect dose administered [None]
  - Decreased appetite [None]
  - Motor dysfunction [None]
  - Mental status changes [None]
  - Hypotension [None]
  - Apathy [None]
  - Oxygen saturation decreased [None]
